FAERS Safety Report 6236889-3 (Version None)
Quarter: 2009Q2

REPORT INFORMATION
  Report Type: 
  Country: None (occurrence: None)
  Receive Date: 20090619
  Receipt Date: 20090609
  Transmission Date: 20091009
  Serious: Yes (Hospitalization, Disabling, Other)
  Sender: FDA-Public Use
  Company Number: US-PFIZER INC-2009227079

PATIENT
  Sex: Female
  Weight: 78.005 kg

DRUGS (5)
  1. GEODON [Suspect]
     Indication: MAJOR DEPRESSION
     Dates: start: 20071101, end: 20080101
  2. GEODON [Suspect]
     Indication: BIPOLAR DISORDER
  3. XANAX [Suspect]
     Indication: NERVOUSNESS
     Dosage: 12 MG ONCE
     Dates: start: 20030101, end: 20071122
  4. ANTIMIGRAINE PREPARATIONS [Suspect]
     Indication: MIGRAINE
     Dates: end: 20080101
  5. BOTULINUM TOXIN TYPE A [Suspect]
     Indication: DYSTONIA
     Dates: start: 20081201, end: 20090301

REACTIONS (10)
  - ANXIETY [None]
  - CHOKING [None]
  - DEPRESSION [None]
  - DISABILITY [None]
  - DYSKINESIA [None]
  - DYSTONIA [None]
  - INTENTIONAL OVERDOSE [None]
  - MIGRAINE [None]
  - MUSCULAR WEAKNESS [None]
  - PANIC REACTION [None]
